FAERS Safety Report 10547599 (Version 1)
Quarter: 2014Q4

REPORT INFORMATION
  Report Type: Spontaneous
  Country: US (occurrence: None)
  Receive Date: 20141015
  Receipt Date: 20141015
  Transmission Date: 20150529
  Serious: No
  Sender: FDA-Public Use
  Company Number: 2014US003497

PATIENT
  Age: 65 Year
  Sex: Female
  Weight: 52.2 kg

DRUGS (3)
  1. VICODIN [Concomitant]
     Active Substance: ACETAMINOPHEN\HYDROCODONE BITARTRATE
  2. HYDROXYUREA. [Concomitant]
     Active Substance: HYDROXYUREA
  3. ICLUSIG [Suspect]
     Active Substance: PONATINIB
     Indication: CHRONIC MYELOID LEUKAEMIA
     Route: 048

REACTIONS (7)
  - Muscular weakness [None]
  - Myalgia [None]
  - Pyrexia [None]
  - Headache [None]
  - Non-cardiac chest pain [None]
  - Fatigue [None]
  - Neck pain [None]
